FAERS Safety Report 5601789-6 (Version None)
Quarter: 2008Q1

REPORT INFORMATION
  Report Type: 
  Country: None (occurrence: None)
  Receive Date: 20080111
  Receipt Date: 20070612
  Transmission Date: 20080703
  Serious: Yes (Other)
  Sender: FDA-Public Use
  Company Number: HQWYE739103AUG04

PATIENT
  Age: 49 Year
  Sex: Female
  Weight: 64.01 kg

DRUGS (2)
  1. PREMPHASE 14/14 [Suspect]
  2. PREMARIN [Suspect]

REACTIONS (1)
  - BREAST CANCER [None]
